FAERS Safety Report 4680016-0 (Version None)
Quarter: 2005Q2

REPORT INFORMATION
  Report Type: 
  Country: None (occurrence: None)
  Receive Date: 20050602
  Receipt Date: 20041203
  Transmission Date: 20051028
  Serious: Yes (Other)
  Sender: FDA-Public Use
  Company Number: GB-GLAXOSMITHKLINE-B0359490A

PATIENT
  Sex: Female

DRUGS (6)
  1. PAROXETINE HCL [Suspect]
     Route: 065
     Dates: start: 20010701, end: 20041108
  2. ZOPICLONE [Concomitant]
     Route: 065
  3. DIAZEPAM [Concomitant]
     Route: 065
  4. CARBAMAZEPINE [Concomitant]
     Route: 065
     Dates: start: 20040401
  5. FLUOXETINE [Concomitant]
     Route: 065
     Dates: start: 20041001
  6. TEMAZEPAM [Concomitant]

REACTIONS (29)
  - ABNORMAL DREAMS [None]
  - AGITATION [None]
  - AGORAPHOBIA [None]
  - ANOREXIA [None]
  - ANXIETY [None]
  - CHOKING SENSATION [None]
  - CLAUSTROPHOBIA [None]
  - CONVULSION [None]
  - CRYING [None]
  - DEPRESSED MOOD [None]
  - DEPRESSION [None]
  - DISTURBANCE IN ATTENTION [None]
  - DRUG INTOLERANCE [None]
  - DRUG WITHDRAWAL SYNDROME [None]
  - ILL-DEFINED DISORDER [None]
  - INCONTINENCE [None]
  - INITIAL INSOMNIA [None]
  - INSOMNIA [None]
  - LOSS OF CONSCIOUSNESS [None]
  - MALAISE [None]
  - NIGHTMARE [None]
  - OVERDOSE [None]
  - PANIC ATTACK [None]
  - PSYCHOTIC DISORDER [None]
  - SLEEP DISORDER [None]
  - SOCIAL AVOIDANT BEHAVIOUR [None]
  - STRESS [None]
  - SUICIDAL IDEATION [None]
  - VOMITING [None]
